FAERS Safety Report 23241925 (Version 1)
Quarter: 2023Q4

REPORT INFORMATION
  Report Type: Spontaneous
  Country: FR (occurrence: None)
  Receive Date: 20231129
  Receipt Date: 20231129
  Transmission Date: 20240110
  Serious: Yes (Hospitalization)
  Sender: FDA-Public Use
  Company Number: 2023A264542

PATIENT
  Age: 49 Year
  Sex: Male

DRUGS (3)
  1. QUETIAPINE [Suspect]
     Active Substance: QUETIAPINE
  2. ZOLPIDEM [Suspect]
     Active Substance: ZOLPIDEM TARTRATE
  3. ALPRAZOLAM [Suspect]
     Active Substance: ALPRAZOLAM

REACTIONS (3)
  - Coma [Recovered/Resolved]
  - Tachycardia [Recovered/Resolved]
  - Hypertension [Recovered/Resolved]
